FAERS Safety Report 7690270-9 (Version None)
Quarter: 2011Q3

REPORT INFORMATION
  Report Type: 
  Country: None (occurrence: None)
  Receive Date: 20110818
  Receipt Date: 20110816
  Transmission Date: 20111222
  Serious: Yes (Other)
  Sender: FDA-Public Use
  Company Number: US-PFIZER INC-2011188695

PATIENT
  Sex: Female
  Weight: 66 kg

DRUGS (3)
  1. SYNTHROID [Concomitant]
     Indication: THYROID DISORDER
     Dosage: 125 MCG, UNK
  2. TRIAMTERENE AND HYDROCHLOROTHIAZIDE [Concomitant]
     Indication: HYPERTENSION
     Dosage: 75/50 MG, UNK
  3. LYRICA [Suspect]
     Indication: NERVE INJURY
     Dosage: 50 MG, 3X/DAY
     Route: 048
     Dates: start: 20110501

REACTIONS (7)
  - DIZZINESS [None]
  - PANIC ATTACK [None]
  - VISION BLURRED [None]
  - MALAISE [None]
  - NAUSEA [None]
  - ASTHENIA [None]
  - PYREXIA [None]
